FAERS Safety Report 7548077-9 (Version None)
Quarter: 2011Q2

REPORT INFORMATION
  Report Type: 
  Country: None (occurrence: None)
  Receive Date: 20110608
  Receipt Date: 20110525
  Transmission Date: 20111010
  Serious: Yes (Hospitalization, Congenital Anomaly, Other)
  Sender: FDA-Public Use
  Company Number: 1000021415

PATIENT
  Sex: Female
  Weight: 2.49 kg

DRUGS (5)
  1. MIRTAZAPINE [Suspect]
     Dosage: 30 MG (30 MG, 1 IN 1 D),TRANSPLACENTA, 15 MG (15 MG, 1 IN 1 D),TRANSPLACEN
     Route: 064
  2. FOLIO FORTE (FOLIC ACID) (FOLIC ACID) [Concomitant]
  3. PARACETAMOL (PARACETAMOL)(PARACETAMOL) [Concomitant]
  4. ESCITALOPRAM OXALATE [Suspect]
     Dosage: 10 MG (10 MG, 1 IN 1 D),TRANSPLACENTAL
     Route: 064
     Dates: start: 20091001, end: 20091201
  5. AUGMENTAN (AUGMENTIN) [Concomitant]

REACTIONS (7)
  - FEEDING DISORDER NEONATAL [None]
  - MATERNAL DRUGS AFFECTING FOETUS [None]
  - HYPERBILIRUBINAEMIA [None]
  - PREMATURE BABY [None]
  - CONGENITAL ANOMALY [None]
  - CAESAREAN SECTION [None]
  - HAEMANGIOMA CONGENITAL [None]
